FAERS Safety Report 11057968 (Version 1)
Quarter: 2015Q2

REPORT INFORMATION
  Report Type: Spontaneous
  Country: None (occurrence: None)
  Receive Date: 20150407
  Receipt Date: 20150407
  Transmission Date: 20150821
  Serious: Yes (Other)
  Sender: FDA-Public Use
  Company Number: US-KEDRION-2015015

PATIENT
  Sex: Male

DRUGS (1)
  1. RHOGAM [Suspect]
     Active Substance: HUMAN RHO(D) IMMUNE GLOBULIN
     Dosage: TRANSPLACENTAL???
     Route: 064

REACTIONS (12)
  - Psoriasis [None]
  - Nervous system disorder [None]
  - Developmental coordination disorder [None]
  - Autism [None]
  - Fear [None]
  - Maternal drugs affecting foetus [None]
  - Depression [None]
  - Anxiety [None]
  - Hypersensitivity [None]
  - Dysgraphia [None]
  - Balance disorder [None]
  - Attention deficit/hyperactivity disorder [None]
